FAERS Safety Report 4528405-9 (Version None)
Quarter: 2004Q4

REPORT INFORMATION
  Report Type: 
  Country: None (occurrence: None)
  Receive Date: 20041216
  Receipt Date: 20041126
  Transmission Date: 20050328
  Serious: Yes (Death, Other)
  Sender: FDA-Public Use
  Company Number: 200413628JP

PATIENT
  Age: 78 Year
  Sex: Female
  Weight: 43 kg

DRUGS (6)
  1. TAXOTERE [Suspect]
     Indication: TONGUE NEOPLASM MALIGNANT STAGE UNSPECIFIED
     Route: 013
     Dates: start: 20041117, end: 20041117
  2. RANDA [Concomitant]
     Indication: TONGUE NEOPLASM MALIGNANT STAGE UNSPECIFIED
     Route: 013
     Dates: start: 20041117, end: 20041117
  3. UFT [Concomitant]
     Indication: TONGUE NEOPLASM MALIGNANT STAGE UNSPECIFIED
     Route: 048
     Dates: start: 20041012, end: 20041123
  4. AMARYL [Concomitant]
     Indication: DIABETES MELLITUS
     Route: 048
     Dates: start: 20041105, end: 20041123
  5. NORVASC [Concomitant]
     Indication: HYPERTENSION
     Route: 048
     Dates: start: 20041026, end: 20041123
  6. ALDACTONE [Concomitant]
     Indication: HYPERTENSION
     Route: 048
     Dates: start: 20041111, end: 20041123

REACTIONS (7)
  - BONE MARROW DEPRESSION [None]
  - DIALYSIS [None]
  - HAEMOGLOBIN DECREASED [None]
  - MULTI-ORGAN FAILURE [None]
  - NEUTROPENIA [None]
  - SEPTIC SHOCK [None]
  - THROMBOCYTOPENIA [None]
